APPROVED DRUG PRODUCT: VANCOMYCIN HYDROCHLORIDE
Active Ingredient: VANCOMYCIN HYDROCHLORIDE
Strength: EQ 500MG BASE/VIAL
Dosage Form/Route: INJECTABLE;INJECTION
Application: A065397 | Product #001 | TE Code: AP
Applicant: MYLAN LABORATORIES LTD
Approved: Dec 30, 2008 | RLD: No | RS: No | Type: RX